FAERS Safety Report 6047975-5 (Version None)
Quarter: 2009Q1

REPORT INFORMATION
  Report Type: 
  Country: None (occurrence: None)
  Receive Date: 20090123
  Receipt Date: 20090114
  Transmission Date: 20090719
  Serious: Yes (Hospitalization, Disabling)
  Sender: FDA-Public Use
  Company Number: PHHY2009FR01766

PATIENT
  Sex: Female

DRUGS (1)
  1. ZOMETA [Suspect]
     Dosage: 4 MG, QMO
     Dates: start: 20021001, end: 20050101

REACTIONS (5)
  - BONE DISORDER [None]
  - MUCOSAL ATROPHY [None]
  - OSTEONECROSIS [None]
  - TONGUE ULCERATION [None]
  - TOOTH REPAIR [None]
